FAERS Safety Report 4303699-3 (Version None)
Quarter: 2004Q1

REPORT INFORMATION
  Report Type: 
  Country: None (occurrence: None)
  Receive Date: 20040204
  Receipt Date: 20030224
  Transmission Date: 20041129
  Serious: Yes (Life-Threatening)
  Sender: FDA-Public Use
  Company Number: RESPIGAM-00426

PATIENT
  Age: 15 Month

DRUGS (2)
  1. RESPIGAM [Suspect]
     Indication: PROPHYLAXIS
     Dosage: 2.5 G Q30D IV
     Route: 042
     Dates: start: 20020403, end: 20020403
  2. RESPIGAM [Suspect]
     Indication: RESPIRATORY SYNCYTIAL VIRUS INFECTION
     Dosage: 2.5 G Q30D IV
     Route: 042
     Dates: start: 20020403, end: 20020403

REACTIONS (6)
  - CHILLS [None]
  - DYSPNOEA [None]
  - HYPERTENSION [None]
  - PYREXIA [None]
  - TACHYCARDIA [None]
  - VOMITING [None]
